FAERS Safety Report 11162918 (Version 1)
Quarter: 2015Q2

REPORT INFORMATION
  Report Type: Spontaneous
  Country: US (occurrence: US)
  Receive Date: 20150604
  Receipt Date: 20150604
  Transmission Date: 20150821
  Serious: No
  Sender: FDA-Public Use
  Company Number: US-SA-2015SA018242

PATIENT
  Sex: Female
  Weight: 37.9 kg

DRUGS (10)
  1. LANTUS SOLOSTAR [Suspect]
     Active Substance: INSULIN GLARGINE
     Indication: TYPE 1 DIABETES MELLITUS
     Route: 065
  2. NPH INSULIN [Suspect]
     Active Substance: INSULIN BEEF
     Route: 065
  3. SOLOSTAR [Concomitant]
     Active Substance: DEVICE
  4. HUMALOG [Concomitant]
     Active Substance: INSULIN LISPRO
  5. APIDRA [Suspect]
     Active Substance: INSULIN GLULISINE
     Route: 065
  6. HIZENTRA [Concomitant]
     Active Substance: HUMAN IMMUNOGLOBULIN G
     Dates: start: 20150209, end: 20150212
  7. INSULIN, REGULAR [Suspect]
     Active Substance: INSULIN NOS
     Route: 065
  8. LEVOTHROID [Concomitant]
     Active Substance: LEVOTHYROXINE SODIUM
  9. NOVOLOG [Suspect]
     Active Substance: INSULIN ASPART
     Route: 065
  10. LEVEMIR [Suspect]
     Active Substance: INSULIN DETEMIR
     Route: 065

REACTIONS (8)
  - Skin discolouration [Unknown]
  - Injection site scab [Unknown]
  - Erythema [Unknown]
  - Glycosylated haemoglobin increased [Unknown]
  - Injection site swelling [Unknown]
  - Injection site pain [Unknown]
  - Injection site reaction [Unknown]
  - Drug administration error [Unknown]

NARRATIVE: CASE EVENT DATE: 2015
